FAERS Safety Report 4342110-3 (Version None)
Quarter: 2004Q2

REPORT INFORMATION
  Report Type: 
  Country: None (occurrence: None)
  Receive Date: 20040409
  Receipt Date: 20030303
  Transmission Date: 20050107
  Serious: Yes (Hospitalization)
  Sender: FDA-Public Use
  Company Number: 02P-163-0202149-00

PATIENT
  Age: 52 Year
  Sex: Male

DRUGS (6)
  1. DEPAKOTE [Suspect]
     Indication: BIPOLAR DISORDER
     Dosage: 500 MG, 1 IN 1 D, PER ORAL
     Route: 048
     Dates: start: 19960101, end: 20021001
  2. RISPERIDONE [Concomitant]
  3. INHALER [Concomitant]
  4. INSULIN [Concomitant]
  5. TRIHEXYPHENIDYL HCL [Concomitant]
  6. OLANZAPINE [Concomitant]

REACTIONS (1)
  - PANCREATITIS ACUTE [None]
